FAERS Safety Report 5511741-7 (Version None)
Quarter: 2007Q4

REPORT INFORMATION
  Report Type: 
  Country: None (occurrence: None)
  Receive Date: 20071109
  Receipt Date: 20071107
  Transmission Date: 20080405
  Serious: Yes (Hospitalization)
  Sender: FDA-Public Use
  Company Number: GB-ROXANE LABORATORIES, INC-2007-BP-24014RO

PATIENT
  Age: 54 Year
  Sex: Male

DRUGS (4)
  1. METHADONE HCL [Suspect]
     Indication: OVERDOSE
     Route: 048
  2. FUROSEMIDE [Concomitant]
     Indication: BLOOD PRESSURE
     Route: 042
  3. GLYCERYL TRINITRATE [Concomitant]
     Indication: BLOOD PRESSURE
     Route: 042
  4. NALOXONE [Concomitant]
     Indication: REVERSAL OF OPIATE ACTIVITY
     Route: 042

REACTIONS (4)
  - ACUTE RESPIRATORY DISTRESS SYNDROME [None]
  - OVERDOSE [None]
  - PULMONARY OEDEMA [None]
  - SINUS TACHYCARDIA [None]
